FAERS Safety Report 8710765 (Version 3)
Quarter: 2012Q4

REPORT INFORMATION
  Report Type: Report from Study
  Country: JP (occurrence: JP)
  Receive Date: 20120807
  Receipt Date: 20121220
  Transmission Date: 20130627
  Serious: Yes (Death, Other)
  Sender: FDA-Public Use
  Company Number: PHHY2012JP029397

PATIENT
  Age: 64 Year
  Sex: Male
  Weight: 78 kg

DRUGS (7)
  1. AFINITOR [Suspect]
     Indication: METASTATIC RENAL CELL CARCINOMA
     Dosage: 10 mg, daily
     Route: 048
     Dates: start: 20120228, end: 20120319
  2. SUNITINIB MALATE [Concomitant]
     Indication: METASTATIC RENAL CELL CARCINOMA
     Dosage: 12.5 mg, UNK
     Route: 048
     Dates: start: 20111123, end: 20120227
  3. CLEANAL [Concomitant]
     Indication: METASTATIC RENAL CELL CARCINOMA
     Dosage: 600 mg, UNK
     Route: 048
     Dates: start: 20111214
  4. AMLODIPINE BESILATE [Concomitant]
     Indication: PROPHYLAXIS
     Dosage: 5 mg, UNK
     Route: 048
     Dates: start: 20111201
  5. BLOPRESS [Concomitant]
     Indication: PROPHYLAXIS
     Dosage: 4 mg, UNK
     Route: 048
     Dates: start: 20111209
  6. REBAMIPIDE [Concomitant]
     Indication: PROPHYLAXIS
     Dosage: 300 mg, UNK
     Route: 048
     Dates: start: 20111204
  7. WHITE PETROLATUM [Concomitant]
     Indication: PROPHYLAXIS
     Route: 062
     Dates: start: 20120229

REACTIONS (4)
  - Neoplasm progression [Fatal]
  - Malignant neoplasm progression [Fatal]
  - C-reactive protein increased [Unknown]
  - Haemoglobin decreased [Unknown]
